FAERS Safety Report 9897784 (Version 2)
Quarter: 2014Q1

REPORT INFORMATION
  Report Type: Spontaneous
  Country: IL (occurrence: IL)
  Receive Date: 20140214
  Receipt Date: 20140228
  Transmission Date: 20141002
  Serious: Yes (Death, Hospitalization)
  Sender: FDA-Public Use
  Company Number: IL-NOVOPROD-399675

PATIENT
  Age: 62 Year
  Sex: Female

DRUGS (15)
  1. VICTOZA [Suspect]
     Indication: TYPE 2 DIABETES MELLITUS
     Dosage: 1.8 MG, QD
     Route: 065
     Dates: start: 201008, end: 201011
  2. VICTOZA [Suspect]
     Dosage: 1.8 MG, QD
     Route: 065
     Dates: start: 201204, end: 201308
  3. NOVONORM [Concomitant]
  4. GLIBETIC                           /00145301/ [Concomitant]
  5. PRANDASE [Concomitant]
     Dosage: UNK
     Dates: end: 2011
  6. AVANDIA [Concomitant]
     Dosage: UNK
     Dates: end: 2010
  7. ASPIRIN [Concomitant]
  8. METFORMIN [Concomitant]
  9. CAPTOPRIL [Concomitant]
  10. LIPITOR [Concomitant]
     Dosage: UNK
  11. OMEPRADEX [Concomitant]
     Dosage: UNK
     Route: 065
  12. FOLIC ACID [Concomitant]
     Dosage: UNK
     Route: 065
  13. DERALIN                            /00030001/ [Concomitant]
     Dosage: UNK
     Route: 065
  14. DISOTHIAZIDE [Concomitant]
     Dosage: UNK
     Route: 065
  15. SERETIDE [Concomitant]
     Dosage: UNK
     Route: 065

REACTIONS (1)
  - Pancreatic carcinoma metastatic [Fatal]
